FAERS Safety Report 15478967 (Version 1)
Quarter: 2018Q4

REPORT INFORMATION
  Report Type: Spontaneous
  Country: JP (occurrence: JP)
  Receive Date: 20181009
  Receipt Date: 20181009
  Transmission Date: 20190205
  Serious: Yes (Hospitalization)
  Sender: FDA-Public Use
  Company Number: JP-ELI_LILLY_AND_COMPANY-JP201809000015

PATIENT
  Age: 82 Year
  Sex: Female

DRUGS (3)
  1. FORTEO [Suspect]
     Active Substance: TERIPARATIDE
     Indication: OSTEOPOROSIS
     Dosage: 20 UG, DAILY
     Route: 058
     Dates: start: 20110811, end: 20130712
  2. PRALIA [Concomitant]
     Active Substance: DENOSUMAB
     Indication: OSTEOPOROSIS
     Dosage: UNK
     Dates: end: 201710
  3. RECALBON                           /06391801/ [Concomitant]
     Active Substance: MINODRONIC ACID
     Indication: OSTEOPOROSIS

REACTIONS (1)
  - Myxofibrosarcoma [Recovered/Resolved with Sequelae]

NARRATIVE: CASE EVENT DATE: 201805
